FAERS Safety Report 21915407 (Version 1)
Quarter: 2023Q1

REPORT INFORMATION
  Report Type: Other
  Country: ZA (occurrence: None)
  Receive Date: 20230126
  Receipt Date: 20230126
  Transmission Date: 20230417
  Serious: Yes (Other)
  Sender: FDA-Public Use
  Company Number: ZA-ROCHE-3268775

PATIENT
  Sex: Male

DRUGS (1)
  1. OCREVUS [Suspect]
     Active Substance: OCRELIZUMAB
     Indication: Primary progressive multiple sclerosis
     Dosage: 600MG EVERY 6 MONTHS.
     Route: 041
     Dates: start: 20220815

REACTIONS (10)
  - Magnetic resonance imaging head abnormal [Unknown]
  - Lacunar infarction [Unknown]
  - Intervertebral disc protrusion [Unknown]
  - Thecal sac compression [Unknown]
  - Cervical spinal stenosis [Unknown]
  - Cervical radiculopathy [Unknown]
  - Spinal stenosis [Unknown]
  - Facet joint syndrome [Unknown]
  - Intervertebral disc degeneration [Unknown]
  - Multiple sclerosis [Unknown]
